FAERS Safety Report 11208364 (Version 3)
Quarter: 2015Q3

REPORT INFORMATION
  Report Type: Spontaneous
  Country: US (occurrence: US)
  Receive Date: 20150622
  Receipt Date: 20150714
  Transmission Date: 20151125
  Serious: Yes (Hospitalization)
  Sender: FDA-Public Use
  Company Number: GXBR2015US001591

PATIENT
  Sex: Female

DRUGS (34)
  1. METOLAZONE TABLETS USP [Suspect]
     Active Substance: METOLAZONE
     Dosage: UNK MG, BIW
     Route: 065
  2. SILDENAFIL. [Concomitant]
     Active Substance: SILDENAFIL
     Dosage: UNK DF, UNK
     Route: 065
  3. AMBIEN [Concomitant]
     Active Substance: ZOLPIDEM TARTRATE
     Dosage: UNK DF, UNK
     Route: 065
  4. REMODULIN [Suspect]
     Active Substance: TREPROSTINIL
     Indication: PULMONARY ARTERIAL HYPERTENSION
     Dosage: 0.028 UG/KG, Q48H
     Route: 042
     Dates: start: 20141212
  5. FLONASE//FLUTICASONE PROPIONATE [Concomitant]
     Dosage: UNK DF, UNK
     Route: 065
  6. OMEPRAZOLE. [Concomitant]
     Active Substance: OMEPRAZOLE
     Dosage: UNK DF, UNK
     Route: 065
  7. LISINOPRIL. [Concomitant]
     Active Substance: LISINOPRIL
     Dosage: UNK DF, UNK
     Route: 065
  8. ASPIRIN. [Concomitant]
     Active Substance: ASPIRIN
     Dosage: UNK DF, UNK
     Route: 065
  9. ALBUTEROL. [Concomitant]
     Active Substance: ALBUTEROL
     Dosage: UNK DF, UNK
     Route: 065
  10. METOLAZONE TABLETS USP [Suspect]
     Active Substance: METOLAZONE
     Indication: PULMONARY ARTERIAL HYPERTENSION
     Dosage: UNK MG, QW
     Route: 065
  11. ALLOPURINOL. [Concomitant]
     Active Substance: ALLOPURINOL
     Dosage: UNK DF, UNK
     Route: 065
  12. POTASSIUM [Concomitant]
     Active Substance: POTASSIUM
     Dosage: UNK DF, UNK
     Route: 065
  13. BENADRYL ^WARNER-LAMBERT^               /USA/ [Concomitant]
     Dosage: UNK DF, UNK
     Route: 065
  14. ONDANSETRON [Concomitant]
     Active Substance: ONDANSETRON
     Dosage: UNK DF, UNK
     Route: 065
  15. PROAIR//SALBUTAMOL SULFATE [Concomitant]
     Dosage: UNK DF, UNK
     Route: 065
  16. REMODULIN [Suspect]
     Active Substance: TREPROSTINIL
     Dosage: 0.031 UG/KG, CONTINUOUS DRIP
     Route: 042
  17. NEOSPORIN [Concomitant]
     Active Substance: BACITRACIN ZINC\NEOMYCIN SULFATE\POLYMYXIN B SULFATE
     Dosage: UNK DF, UNK
     Route: 065
  18. MULTI VITAMIN [Concomitant]
     Active Substance: VITAMINS
     Dosage: UNK DF, UNK
     Route: 065
  19. REMODULIN [Suspect]
     Active Substance: TREPROSTINIL
     Dosage: 0.035 UG/KG, Q48H
     Route: 042
  20. MORPHINE [Concomitant]
     Active Substance: MORPHINE
     Dosage: UNK DF, UNK
     Route: 065
  21. FERROUS SULFATE [Concomitant]
     Active Substance: FERROUS SULFATE\FERROUS SULFATE, DRIED
     Dosage: UNK DF, UNK
     Route: 065
  22. ALEVE [Concomitant]
     Active Substance: NAPROXEN SODIUM
     Dosage: UNK DF, UNK
     Route: 065
  23. SPIRONOLACTONE. [Suspect]
     Active Substance: SPIRONOLACTONE
     Indication: PULMONARY ARTERIAL HYPERTENSION
     Dosage: UNK MG, UNK
     Route: 065
  24. XANAX [Concomitant]
     Active Substance: ALPRAZOLAM
     Dosage: UNK DF, UNK
     Route: 065
  25. LEXAPRO [Concomitant]
     Active Substance: ESCITALOPRAM OXALATE
     Dosage: UNK DF, UNK
     Route: 065
  26. REMODULIN [Suspect]
     Active Substance: TREPROSTINIL
     Dosage: 0.030 UG/KG, CONTINUOUS DRIP
     Route: 042
  27. REMODULIN [Suspect]
     Active Substance: TREPROSTINIL
     Dosage: 0.034 UG/KG, Q48H
     Route: 042
  28. DEXAMETHASONE. [Concomitant]
     Active Substance: DEXAMETHASONE
     Dosage: UNK DF, UNK
     Route: 065
  29. PREDNISOLONE. [Concomitant]
     Active Substance: PREDNISOLONE
     Dosage: UNK DF, UNK
     Route: 065
  30. LIDODERM [Concomitant]
     Active Substance: LIDOCAINE
     Dosage: UNK DF, UNK
     Route: 065
  31. BUMETANIDE. [Concomitant]
     Active Substance: BUMETANIDE
     Dosage: UNK DF, UNK
     Route: 065
  32. SYMBICORT [Concomitant]
     Active Substance: BUDESONIDE\FORMOTEROL FUMARATE DIHYDRATE
     Dosage: UNK DF, UNK
     Route: 065
  33. STOOL SOFTENER [Concomitant]
     Active Substance: DOCUSATE CALCIUM
     Dosage: UNK DF, UNK
     Route: 065
  34. WELLBUTRIN [Concomitant]
     Active Substance: BUPROPION HYDROCHLORIDE
     Dosage: UNK DF, UNK
     Route: 065

REACTIONS (8)
  - Bronchitis [Unknown]
  - Renal failure [Unknown]
  - Viral infection [Recovered/Resolved]
  - Renal injury [Recovered/Resolved]
  - Weight increased [Unknown]
  - Fluid overload [Not Recovered/Not Resolved]
  - Dyspnoea [Unknown]
  - Fluid overload [Recovered/Resolved]

NARRATIVE: CASE EVENT DATE: 20150512
